FAERS Safety Report 26095660 (Version 1)
Quarter: 2025Q4

REPORT INFORMATION
  Report Type: Spontaneous
  Country: EU (occurrence: EU)
  Receive Date: 20251127
  Receipt Date: 20251127
  Transmission Date: 20260117
  Serious: Yes (Hospitalization)
  Sender: SUNOVION
  Company Number: None

PATIENT
  Age: 73 Year
  Sex: Male
  Weight: 122.7 kg

DRUGS (1)
  1. RELUGOLIX [Suspect]
     Active Substance: RELUGOLIX
     Indication: Prostate cancer
     Dosage: STRENGTH: 120 MG FILM-COATED TABLETS, 30 TABLETS BLISTER (ALU/ALU), 120MG/24H
     Route: 048
     Dates: start: 20250717

REACTIONS (2)
  - Atrial fibrillation [Recovered/Resolved]
  - Condition aggravated [Recovered/Resolved]

NARRATIVE: CASE EVENT DATE: 20250922
